FAERS Safety Report 8683470 (Version 2)
Quarter: 2012Q4

REPORT INFORMATION
  Report Type: 
  Country: US (occurrence: US)
  Receive Date: 20120726
  Receipt Date: 20121029
  Transmission Date: 20130627
  Serious: Yes (Hospitalization, Other)
  Sender: FDA-Public Use
  Company Number: US-BAYER-2012-073926

PATIENT
  Age: 24 Year
  Sex: Female
  Weight: 45.35 kg

DRUGS (7)
  1. YAZ [Suspect]
     Indication: CONTRACEPTION
     Dosage: UNK
     Dates: start: 200804, end: 201004
  2. SYNTHROID [Concomitant]
     Indication: THYROID DISORDER
     Dosage: 0.05 mg, UNK
     Dates: start: 2008
  3. GABAPENTIN [Concomitant]
     Indication: SEIZURES
     Dosage: UNK
     Dates: start: 2008
  4. BUDEPRION XL [Concomitant]
     Indication: ANXIETY
     Dosage: 300 mg, UNK
  5. HYOSCYAMINE [Concomitant]
     Indication: NAUSEA
     Dosage: 0.375 mg, BID
     Dates: start: 2008
  6. PROMETHAZINE [Concomitant]
     Indication: VOMITING
     Dosage: 25 mg/day
     Dates: start: 2008
  7. TYLENOL WITH CODEIN #3 [Concomitant]
     Dosage: UNK UNK, PRN

REACTIONS (14)
  - Gallbladder disorder [None]
  - Injury [None]
  - Gastric disorder [None]
  - Pain [None]
  - Cholecystitis chronic [None]
  - Emotional distress [None]
  - Pain [None]
  - Anxiety [None]
  - General physical health deterioration [None]
  - Malnutrition [None]
  - Convulsion [None]
  - Nervous system disorder [None]
  - Rickets [None]
  - Hypovitaminosis [None]
